FAERS Safety Report 20156844 (Version 1)
Quarter: 2021Q4

REPORT INFORMATION
  Report Type: Spontaneous
  Country: CA (occurrence: None)
  Receive Date: 20211207
  Receipt Date: 20211207
  Transmission Date: 20220304
  Serious: No
  Sender: FDA-Public Use
  Company Number: None

PATIENT
  Age: 29 Year
  Sex: Male

DRUGS (2)
  1. INVEGA SUSTENNA [Suspect]
     Active Substance: PALIPERIDONE PALMITATE
     Dates: start: 20211124
  2. PALIPERIDONE [Suspect]
     Active Substance: PALIPERIDONE
     Dates: start: 20211116, end: 20211207

REACTIONS (1)
  - Tremor [None]

NARRATIVE: CASE EVENT DATE: 20211205
